FAERS Safety Report 7938931-8 (Version None)
Quarter: 2011Q4

REPORT INFORMATION
  Report Type: 
  Country: None (occurrence: None)
  Receive Date: 20111124
  Receipt Date: 20111114
  Transmission Date: 20120403
  Serious: Yes (Death, Other)
  Sender: FDA-Public Use
  Company Number: CN-BRISTOL-MYERS SQUIBB COMPANY-16229031

PATIENT
  Age: 62 Year
  Sex: Male

DRUGS (3)
  1. IFOSFAMIDE [Suspect]
     Indication: LEIOMYOSARCOMA
     Dosage: ON DAY 1-3.NO OF COURSE RECEIVED-3.
  2. ETOPOSIDE [Suspect]
     Indication: LEIOMYOSARCOMA
     Dosage: ON DAY 1-4.
  3. CISPLATIN [Suspect]
     Indication: LEIOMYOSARCOMA
     Dosage: DAY 1,28 DAY OFF.NO OF COURSE RECEIVED-3.

REACTIONS (3)
  - MYELODYSPLASTIC SYNDROME [None]
  - NEOPLASM MALIGNANT [None]
  - ACUTE MYELOID LEUKAEMIA [None]
